FAERS Safety Report 18935298 (Version 2)
Quarter: 2021Q1

REPORT INFORMATION
  Report Type: Spontaneous
  Country: US (occurrence: US)
  Receive Date: 20210224
  Receipt Date: 20210308
  Transmission Date: 20210420
  Serious: Yes (Other)
  Sender: FDA-Public Use
  Company Number: US-HRARD-202000912

PATIENT
  Age: 2 Year
  Sex: Male

DRUGS (4)
  1. FLUDROCORTISONE [Concomitant]
     Active Substance: FLUDROCORTISONE
     Indication: ADRENAL INSUFFICIENCY
     Dosage: STARTED AT 0.1 MG/DAY
  2. MITOTANE [Suspect]
     Active Substance: MITOTANE
     Indication: ADRENOCORTICAL CARCINOMA
     Dosage: START DOSE: 1.2 G/M2/DAY PROGRESSIVELY INCREASED TO 4.0 MG/M2/DAY
  3. CHEMOTHERAPY WITH CISPLATIN, ETOPOSIDE, DOXORUBICIN [Concomitant]
     Indication: ADRENOCORTICAL CARCINOMA
  4. HYDROCORTISONE. [Concomitant]
     Active Substance: HYDROCORTISONE
     Indication: ADRENAL INSUFFICIENCY
     Dosage: STARTED AT 40 MG/M2/DAY

REACTIONS (6)
  - Adrenal insufficiency [Recovered/Resolved]
  - Gastrointestinal disorder [Recovered/Resolved]
  - Cognitive disorder [Recovering/Resolving]
  - Growth retardation [Recovered/Resolved]
  - Precocious puberty [Recovered/Resolved]
  - Neurological symptom [Recovered/Resolved]
